FAERS Safety Report 18571779 (Version 5)
Quarter: 2021Q1

REPORT INFORMATION
  Report Type: Spontaneous
  Country: US (occurrence: US)
  Receive Date: 20201202
  Receipt Date: 20210202
  Transmission Date: 20210419
  Serious: Yes (Life-Threatening, Other)
  Sender: FDA-Public Use
  Company Number: US-PFIZER INC-2020473968

PATIENT
  Age: 78 Year
  Sex: Female

DRUGS (1)
  1. INSPRA [Suspect]
     Active Substance: EPLERENONE
     Dosage: 50 MG

REACTIONS (4)
  - Hypertension [Unknown]
  - Illness [Unknown]
  - Heart rate increased [Unknown]
  - Hypertensive crisis [Unknown]
